FAERS Safety Report 7153764-0 (Version None)
Quarter: 2010Q4

REPORT INFORMATION
  Report Type: 
  Country: None (occurrence: None)
  Receive Date: 20101213
  Receipt Date: 20091209
  Transmission Date: 20110411
  Serious: No
  Sender: FDA-Public Use
  Company Number: US-ABBOTT-09P-163-0613215-00

PATIENT
  Sex: Female
  Weight: 116.22 kg

DRUGS (3)
  1. MERIDIA [Suspect]
     Indication: WEIGHT DECREASED
     Route: 048
     Dates: start: 20091207
  2. MERIDIA [Suspect]
     Route: 048
     Dates: start: 20091110, end: 20091206
  3. METFORMIN HCL [Concomitant]
     Indication: GLUCOSE TOLERANCE IMPAIRED
     Route: 048

REACTIONS (2)
  - CONSTIPATION [None]
  - DRUG INEFFECTIVE [None]
